FAERS Safety Report 7945675-5 (Version None)
Quarter: 2011Q4

REPORT INFORMATION
  Report Type: 
  Country: None (occurrence: None)
  Receive Date: 20111129
  Receipt Date: 20111128
  Transmission Date: 20120403
  Serious: Yes (Hospitalization)
  Sender: FDA-Public Use
  Company Number: IT-BAYER-2011-114149

PATIENT
  Sex: Male

DRUGS (1)
  1. ACETYLSALICYLIC ACID SRT [Suspect]

REACTIONS (2)
  - HAEMOPTYSIS [None]
  - HYPONATRAEMIA [None]
